FAERS Safety Report 10196598 (Version 1)
Quarter: 2014Q2

REPORT INFORMATION
  Report Type: Spontaneous
  Country: DE (occurrence: DE)
  Receive Date: 20140527
  Receipt Date: 20140527
  Transmission Date: 20141212
  Serious: Yes (Congenital Anomaly, Other)
  Sender: FDA-Public Use
  Company Number: DE-PFIZER INC-2014137177

PATIENT
  Age: 1 Day
  Sex: Male
  Weight: 2.81 kg

DRUGS (3)
  1. SULFASALAZINE [Suspect]
     Indication: PSORIATIC ARTHROPATHY
     Dosage: 500 MG, 2X/DAY
     Route: 064
     Dates: start: 20111204, end: 20120914
  2. METHOTREXATE SODIUM [Suspect]
     Indication: PSORIATIC ARTHROPATHY
     Dosage: 10 MG, WEEKLY FROM GW 0 TO 5
     Route: 064
  3. FOLSAN [Concomitant]
     Indication: PROPHYLAXIS OF NEURAL TUBE DEFECT
     Dosage: 0.4 MG, 1X/DAY
     Route: 064

REACTIONS (4)
  - Maternal exposure during pregnancy [Not Recovered/Not Resolved]
  - Ventricular septal defect [Recovered/Resolved with Sequelae]
  - Pulmonary artery stenosis congenital [Recovered/Resolved]
  - Renal fusion anomaly [Not Recovered/Not Resolved]
